FAERS Safety Report 9798296 (Version 1)
Quarter: 2013Q4

REPORT INFORMATION
  Report Type: Spontaneous
  Country: FR (occurrence: None)
  Receive Date: 20131231
  Receipt Date: 20131231
  Transmission Date: 20140711
  Serious: Yes (Hospitalization)
  Sender: FDA-Public Use
  Company Number: 2092200

PATIENT
  Age: 73 Year
  Sex: Male

DRUGS (12)
  1. VINCRISTINE SULFATE [Suspect]
     Indication: T-CELL LYMPHOMA
     Dosage: 1 CYCLICAL
     Route: 042
     Dates: start: 20131030, end: 20131030
  2. ENDOXAN/00021101 [Suspect]
     Indication: T-CELL LYMPHOMA
     Dosage: 1 CYCLICAL
     Route: 042
     Dates: start: 20131030, end: 20131030
  3. ADRIBLASTINE [Suspect]
     Indication: T-CELL LYMPHOMA
     Dosage: 1 CYCLICAL
     Route: 042
     Dates: start: 20131030, end: 20131030
  4. KARDEGIC [Concomitant]
  5. LASILIX [Concomitant]
  6. EUPANTOL [Concomitant]
  7. TRIATEC [Concomitant]
  8. PROCORALAN [Concomitant]
  9. SOLUPRED [Concomitant]
  10. STILNOX [Concomitant]
  11. CYCLOPHOSPHAMIDE W/DOXORUBICIN/PREDNISONE/VIN [Concomitant]
  12. MABTHERA [Concomitant]

REACTIONS (8)
  - Pancytopenia [None]
  - Aplasia [None]
  - Inflammation [None]
  - Septic shock [None]
  - Arrhythmia [None]
  - No therapeutic response [None]
  - Interstitial lung disease [None]
  - Oxygen saturation decreased [None]
